FAERS Safety Report 6958252-X (Version None)
Quarter: 2010Q3

REPORT INFORMATION
  Report Type: 
  Country: None (occurrence: None)
  Receive Date: 20100831
  Receipt Date: 20100818
  Transmission Date: 20110219
  Serious: Yes (Other)
  Sender: FDA-Public Use
  Company Number: US-JNJFOC-20100808680

PATIENT
  Age: 57 Year
  Sex: Female

DRUGS (5)
  1. REMICADE [Suspect]
     Indication: PRODUCT USED FOR UNKNOWN INDICATION
     Route: 042
  2. REMICADE [Suspect]
     Route: 042
  3. SOLU-MEDROL [Concomitant]
     Indication: PREMEDICATION
  4. BENADRYL [Concomitant]
     Indication: PREMEDICATION
  5. TYLENOL-500 [Concomitant]
     Indication: PREMEDICATION

REACTIONS (6)
  - DYSPNOEA [None]
  - FLUSHING [None]
  - INFUSION RELATED REACTION [None]
  - NAUSEA [None]
  - OXYGEN SATURATION DECREASED [None]
  - VOMITING [None]
